FAERS Safety Report 9447650 (Version 3)
Quarter: 2013Q4

REPORT INFORMATION
  Report Type: Spontaneous
  Country: FR (occurrence: FR)
  Receive Date: 20130808
  Receipt Date: 20131104
  Transmission Date: 20140711
  Serious: Yes (Hospitalization)
  Sender: FDA-Public Use
  Company Number: FR-009507513-1307FRA016969

PATIENT
  Age: 81 Year
  Sex: Female

DRUGS (8)
  1. EMEND [Suspect]
     Dosage: UNK
     Route: 048
     Dates: start: 20130618, end: 20130620
  2. ELOXATINE [Suspect]
     Dosage: 72.25 MG/M2, CYCLICAL
     Route: 051
     Dates: start: 20130618, end: 20130619
  3. FLUOROURACIL [Suspect]
     Dosage: UNK
     Route: 042
     Dates: start: 20130618, end: 20130619
  4. LEUCOVORIN CALCIUM [Suspect]
     Dosage: 200 MG/M2, CYCLICAL
     Route: 042
     Dates: start: 20130618, end: 20130619
  5. ZOPHREN (ONDANSETRON) [Suspect]
     Dosage: 8 MG, QD
     Route: 051
     Dates: start: 20130618, end: 20130619
  6. PRIMPERAN [Suspect]
     Dosage: 2 DF, QD
     Route: 051
     Dates: start: 20130618, end: 20130619
  7. PREDNISONE [Suspect]
     Dosage: 20 MG, UNK
     Route: 048
     Dates: start: 20130615, end: 20130617
  8. SPASFON [Suspect]
     Dosage: UNK
     Route: 048
     Dates: end: 20130705

REACTIONS (1)
  - Type IV hypersensitivity reaction [Recovered/Resolved]
